FAERS Safety Report 9154646 (Version 1)
Quarter: 2013Q1

REPORT INFORMATION
  Report Type: Report from Study
  Country: US (occurrence: US)
  Receive Date: 20130311
  Receipt Date: 20130311
  Transmission Date: 20140127
  Serious: No
  Sender: FDA-Public Use
  Company Number: US-ABBOTT-12P-163-1015415-00

PATIENT
  Sex: Female

DRUGS (1)
  1. LUPRON DEPOT [Suspect]
     Indication: MENSTRUAL DISORDER
     Route: 030
     Dates: start: 201109, end: 201206

REACTIONS (3)
  - Hyperhidrosis [Recovered/Resolved]
  - Menstrual disorder [Not Recovered/Not Resolved]
  - Off label use [Not Recovered/Not Resolved]
